FAERS Safety Report 15823090 (Version 1)
Quarter: 2019Q1

REPORT INFORMATION
  Report Type: Spontaneous
  Country: ES (occurrence: ES)
  Receive Date: 20190114
  Receipt Date: 20190114
  Transmission Date: 20190417
  Serious: Yes (Other)
  Sender: FDA-Public Use
  Company Number: ES-BAYER-2019-009342

PATIENT
  Age: 59 Year
  Sex: Male
  Weight: 85 kg

DRUGS (7)
  1. ADIRO 100 MG [Suspect]
     Active Substance: ASPIRIN
     Dosage: UNK
     Route: 048
  2. ALIPZA [Suspect]
     Active Substance: PITAVASTATIN
     Indication: HYPERCHOLESTEROLAEMIA
     Dosage: UNK
     Route: 048
  3. BISOPROLOL [Suspect]
     Active Substance: BISOPROLOL
     Indication: HYPERTENSION
     Dosage: UNK
     Route: 048
  4. NEUPRO [Suspect]
     Active Substance: ROTIGOTINE
     Indication: BACK PAIN
     Dosage: UNK
     Route: 058
  5. EZETROL [Suspect]
     Active Substance: EZETIMIBE
     Indication: HYPERCHOLESTEROLAEMIA
     Dosage: UNK
     Route: 048
  6. ANEUROL [DIAZEPAM;PYRIDOXINE HYDROCHLORIDE;THIAMINE HYDROCHLORIDE] [Suspect]
     Active Substance: DIAZEPAM\PYRIDOXINE\THIAMINE
     Indication: BACK PAIN
     Dosage: UNK
     Route: 048
  7. CLOPIDOGREL RATIOPHARM [Suspect]
     Active Substance: CLOPIDOGREL BESILATE
     Dosage: UNK
     Route: 048

REACTIONS (8)
  - Dry mouth [Not Recovered/Not Resolved]
  - Myalgia [Not Recovered/Not Resolved]
  - Pruritus [Not Recovered/Not Resolved]
  - Depression [Not Recovered/Not Resolved]
  - Decreased appetite [Not Recovered/Not Resolved]
  - Amnesia [Not Recovered/Not Resolved]
  - Cough [Not Recovered/Not Resolved]
  - Fatigue [Not Recovered/Not Resolved]

NARRATIVE: CASE EVENT DATE: 20180611
